FAERS Safety Report 12757509 (Version 1)
Quarter: 2016Q3

REPORT INFORMATION
  Report Type: Report from Study
  Country: CA (occurrence: CA)
  Receive Date: 20160919
  Receipt Date: 20160919
  Transmission Date: 20161109
  Serious: Yes (Disabling)
  Sender: FDA-Public Use
  Company Number: CA-AMGEN-CANSL2016123441

PATIENT
  Age: 57 Year
  Sex: Female
  Weight: 71.4 kg

DRUGS (1)
  1. KYPROLIS [Suspect]
     Active Substance: CARFILZOMIB
     Indication: PLASMA CELL MYELOMA
     Dosage: 42 MG, ON DAY 1, 2, 8, 9, 15 AND 16 THEN 12 DAYS OFF
     Route: 042
     Dates: start: 20160728

REACTIONS (3)
  - Infusion site swelling [Recovered/Resolved]
  - Infusion site pain [Recovered/Resolved]
  - Infusion site erythema [Unknown]

NARRATIVE: CASE EVENT DATE: 20160824
